FAERS Safety Report 7579025-3 (Version None)
Quarter: 2011Q2

REPORT INFORMATION
  Report Type: 
  Country: None (occurrence: None)
  Receive Date: 20110628
  Receipt Date: 20110623
  Transmission Date: 20111010
  Serious: Yes (Other)
  Sender: FDA-Public Use
  Company Number: GB-PFIZER INC-2011040203

PATIENT
  Age: 41 Year
  Sex: Female
  Weight: 57 kg

DRUGS (2)
  1. INFLIXIMAB [Suspect]
     Indication: CROHN'S DISEASE
     Dosage: 5 MG/KG, UNK
     Route: 042
     Dates: start: 20101211
  2. HYDROCORTISONE SODIUM SUCCINATE [Suspect]
     Indication: PREMEDICATION
     Dosage: 200 MG, UNK
     Route: 042
     Dates: start: 20101211

REACTIONS (5)
  - INFUSION RELATED REACTION [None]
  - HYPERHIDROSIS [None]
  - TACHYCARDIA [None]
  - PRESYNCOPE [None]
  - LOSS OF CONSCIOUSNESS [None]
